FAERS Safety Report 23133943 (Version 2)
Quarter: 2023Q4

REPORT INFORMATION
  Report Type: Spontaneous
  Country: DE (occurrence: DE)
  Receive Date: 20231101
  Receipt Date: 20231122
  Transmission Date: 20240109
  Serious: Yes (Hospitalization, Other)
  Sender: FDA-Public Use
  Company Number: DE-ROCHE-3312162

PATIENT
  Age: 58 Year
  Sex: Male

DRUGS (6)
  1. RITUXIMAB [Suspect]
     Active Substance: RITUXIMAB
     Indication: Follicular lymphoma
     Dosage: 375 MG/M2
     Route: 042
     Dates: start: 20200506, end: 20220516
  2. VORICONAZOLE [Suspect]
     Active Substance: VORICONAZOLE
     Indication: Follicular lymphoma
     Dosage: UNK
     Route: 065
     Dates: start: 20230119
  3. COTRIM [Concomitant]
     Active Substance: SULFAMETHOXAZOLE\TRIMETHOPRIM
     Indication: Product used for unknown indication
     Dosage: UNK
     Route: 065
  4. MEROPENEM [Concomitant]
     Active Substance: MEROPENEM
     Indication: Product used for unknown indication
     Dosage: UNK
     Route: 065
     Dates: start: 20230511, end: 20230518
  5. NEUPOGEN [Concomitant]
     Active Substance: FILGRASTIM
     Indication: Product used for unknown indication
     Dosage: UNK
     Route: 065
  6. PREDNISOLONE [Concomitant]
     Active Substance: PREDNISOLONE
     Indication: Product used for unknown indication
     Dosage: NEXT DOSE REDUCED TO 15 MG
     Route: 065
     Dates: start: 20230414

REACTIONS (6)
  - COVID-19 pneumonia [Recovered/Resolved]
  - Pneumonia [Not Recovered/Not Resolved]
  - Superinfection bacterial [Recovered/Resolved]
  - COVID-19 [Recovered/Resolved]
  - Respiratory failure [Not Recovered/Not Resolved]
  - Pneumonia fungal [Unknown]

NARRATIVE: CASE EVENT DATE: 20220824
